FAERS Safety Report 6691655-X (Version None)
Quarter: 2010Q2

REPORT INFORMATION
  Report Type: 
  Country: None (occurrence: None)
  Receive Date: 20100422
  Receipt Date: 20090717
  Transmission Date: 20101027
  Serious: No
  Sender: FDA-Public Use
  Company Number: US-ASTRAZENECA-2009SE05222

PATIENT
  Sex: Female

DRUGS (3)
  1. TOPROL-XL [Suspect]
     Route: 048
     Dates: start: 20070301
  2. AMLODIPINE [Suspect]
     Dates: start: 20090501
  3. PREVOCID [Suspect]
     Dates: start: 20050101

REACTIONS (1)
  - HEART RATE INCREASED [None]
